FAERS Safety Report 7244105-9 (Version None)
Quarter: 2011Q1

REPORT INFORMATION
  Report Type: 
  Country: None (occurrence: None)
  Receive Date: 20110119
  Receipt Date: 20110119
  Transmission Date: 20110831
  Serious: Yes (Other)
  Sender: FDA-Public Use
  Company Number: None

PATIENT
  Age: 68 Year
  Sex: Female
  Weight: 83.4619 kg

DRUGS (6)
  1. TYLENOL-500 [Suspect]
     Indication: PAIN
     Dosage: 1 GELCAP AS NEEDED PO
     Route: 048
     Dates: start: 20100601, end: 20110117
  2. LEVOXYL [Concomitant]
  3. SIMVANSTATIN [Concomitant]
  4. MAGNESIUM GLUTANATE [Concomitant]
  5. VITAMIN D [Concomitant]
  6. ASPIRIN [Concomitant]

REACTIONS (1)
  - TINNITUS [None]
